FAERS Safety Report 11528713 (Version 1)
Quarter: 2015Q3

REPORT INFORMATION
  Report Type: Spontaneous
  Country: US (occurrence: US)
  Receive Date: 20150921
  Receipt Date: 20150921
  Transmission Date: 20151125
  Serious: No
  Sender: FDA-Public Use
  Company Number: US-TEVA-528175USA

PATIENT
  Sex: Male
  Weight: 99.88 kg

DRUGS (8)
  1. ASPIRIN. [Concomitant]
     Active Substance: ASPIRIN
  2. LOPERAMIDE [Concomitant]
     Active Substance: LOPERAMIDE
  3. PROVIGIL [Suspect]
     Active Substance: MODAFINIL
     Indication: NARCOLEPSY
     Dosage: HALF TABLET
  4. MODAFINIL. [Suspect]
     Active Substance: MODAFINIL
     Dosage: HALF TABLET
  5. MULTIVITAMIN [Concomitant]
     Active Substance: VITAMINS
  6. TRAMADOL. [Concomitant]
     Active Substance: TRAMADOL
  7. OMEPRAZOLE. [Concomitant]
     Active Substance: OMEPRAZOLE
  8. FISH OIL [Concomitant]
     Active Substance: FISH OIL

REACTIONS (1)
  - Energy increased [Unknown]
